FAERS Safety Report 6604359-6 (Version None)
Quarter: 2010Q1

REPORT INFORMATION
  Report Type: 
  Country: None (occurrence: None)
  Receive Date: 20100226
  Receipt Date: 20090901
  Transmission Date: 20100710
  Serious: No
  Sender: FDA-Public Use
  Company Number: A0805369A

PATIENT
  Age: 56 Year
  Sex: Female

DRUGS (9)
  1. LAMICTAL CD [Suspect]
     Dosage: 200MG TWICE PER DAY
     Route: 048
     Dates: start: 20090522
  2. RESTASIS [Concomitant]
  3. ASPIRIN [Concomitant]
  4. LOVASTATIN [Concomitant]
  5. MULTI-VITAMIN [Concomitant]
  6. CALCIUM [Concomitant]
  7. VITAMIN C [Concomitant]
  8. FLAX SEED OIL [Concomitant]
  9. DILAUDID [Concomitant]

REACTIONS (3)
  - DIPLOPIA [None]
  - DIZZINESS [None]
  - RASH [None]
